FAERS Safety Report 11063157 (Version 2)
Quarter: 2015Q4

REPORT INFORMATION
  Report Type: Spontaneous
  Country: US (occurrence: US)
  Receive Date: 20150424
  Receipt Date: 20151026
  Transmission Date: 20160304
  Serious: Yes (Other)
  Sender: FDA-Public Use
  Company Number: US-ELI_LILLY_AND_COMPANY-US201504005892

PATIENT
  Age: 73 Year
  Sex: Female
  Weight: 76.19 kg

DRUGS (1)
  1. HUMALOG [Suspect]
     Active Substance: INSULIN LISPRO
     Indication: PRODUCT USED FOR UNKNOWN INDICATION
     Dosage: UNK
     Route: 058

REACTIONS (11)
  - Hypoglycaemic unconsciousness [Recovered/Resolved]
  - Drug interaction [Unknown]
  - Pancreatic disorder [Not Recovered/Not Resolved]
  - Hypothyroidism [Unknown]
  - Increased appetite [Unknown]
  - Blood glucose increased [Not Recovered/Not Resolved]
  - Depressed mood [Unknown]
  - Decreased appetite [Unknown]
  - Loss of consciousness [Unknown]
  - Asthenia [Unknown]
  - Increased insulin requirement [Unknown]

NARRATIVE: CASE EVENT DATE: 20150414
